FAERS Safety Report 10018727 (Version 1)
Quarter: 2014Q1

REPORT INFORMATION
  Report Type: Spontaneous
  Country: US (occurrence: US)
  Receive Date: 20140318
  Receipt Date: 20140318
  Transmission Date: 20141002
  Serious: No
  Sender: FDA-Public Use
  Company Number: US-TEVA-464416USA

PATIENT
  Age: 73 Year
  Sex: Female
  Weight: 60.38 kg

DRUGS (7)
  1. QNASL [Suspect]
     Indication: EAR DISCOMFORT
     Route: 045
     Dates: start: 201402
  2. THYROID MEDICATION [Concomitant]
     Indication: THYROID DISORDER
  3. TRIPLE HEART BYPASS MEDICATION [Concomitant]
     Indication: CORONARY ARTERY BYPASS
  4. METHOTREXATE [Concomitant]
     Indication: RHEUMATOID ARTHRITIS
  5. XANAX [Concomitant]
     Indication: PANIC ATTACK
  6. FOLIC ACID [Concomitant]
  7. LISINOPRIL [Concomitant]
     Indication: HYPERTENSION

REACTIONS (2)
  - Drug ineffective [Not Recovered/Not Resolved]
  - Inappropriate schedule of drug administration [Not Recovered/Not Resolved]
